FAERS Safety Report 4873524-0 (Version None)
Quarter: 2006Q1

REPORT INFORMATION
  Report Type: 
  Country: None (occurrence: None)
  Receive Date: 20060105
  Receipt Date: 20051230
  Transmission Date: 20060701
  Serious: Yes (Other)
  Sender: FDA-Public Use
  Company Number: AU-MERCK-0601USA00027

PATIENT
  Age: 6 Year
  Sex: Male

DRUGS (12)
  1. ELSPAR [Suspect]
     Indication: ACUTE LYMPHOCYTIC LEUKAEMIA
     Route: 042
  2. ELSPAR [Suspect]
     Indication: MEDIASTINAL MASS
     Route: 042
  3. VINCRISTINE SULFATE [Concomitant]
     Indication: ACUTE LYMPHOCYTIC LEUKAEMIA
     Route: 065
  4. VINCRISTINE SULFATE [Concomitant]
     Indication: MEDIASTINAL MASS
     Route: 065
  5. DAUNORUBICIN [Concomitant]
     Indication: ACUTE LYMPHOCYTIC LEUKAEMIA
     Route: 065
  6. DAUNORUBICIN [Concomitant]
     Indication: MEDIASTINAL MASS
     Route: 065
  7. METHOTREXATE [Concomitant]
     Indication: ACUTE LYMPHOCYTIC LEUKAEMIA
     Route: 065
  8. METHOTREXATE [Concomitant]
     Indication: MEDIASTINAL MASS
     Route: 065
  9. HYDROCORTISONE [Concomitant]
     Indication: ACUTE LYMPHOCYTIC LEUKAEMIA
     Route: 065
  10. HYDROCORTISONE [Concomitant]
     Indication: MEDIASTINAL MASS
     Route: 065
  11. CYTARABINE [Concomitant]
     Indication: ACUTE LYMPHOCYTIC LEUKAEMIA
     Route: 065
  12. CYTARABINE [Concomitant]
     Indication: MEDIASTINAL MASS
     Route: 065

REACTIONS (10)
  - ABDOMINAL PAIN [None]
  - CONVULSION [None]
  - HYPONATRAEMIA [None]
  - NEPHROLITHIASIS [None]
  - NEUROLOGICAL SYMPTOM [None]
  - NEUTROPENIA [None]
  - ORAL INTAKE REDUCED [None]
  - PYREXIA [None]
  - RESPIRATORY DEPRESSION [None]
  - VOMITING [None]
